FAERS Safety Report 6468227-5 (Version None)
Quarter: 2009Q4

REPORT INFORMATION
  Report Type: 
  Country: None (occurrence: None)
  Receive Date: 20091119
  Receipt Date: 20090724
  Transmission Date: 20100525
  Serious: No
  Sender: FDA-Public Use
  Company Number: WAES 0907USA04347

PATIENT
  Age: 91 Year
  Sex: Female

DRUGS (4)
  1. JANUVIA [Suspect]
     Indication: DIABETES MELLITUS
     Dosage: 50 MG/DAILY/PO
     Route: 048
     Dates: start: 20090515
  2. DIOVAN [Concomitant]
  3. GLIPIZIDE [Concomitant]
  4. METHOTREXATE [Concomitant]

REACTIONS (1)
  - ALOPECIA [None]
